FAERS Safety Report 18214452 (Version 1)
Quarter: 2020Q3

REPORT INFORMATION
  Report Type: Spontaneous
  Country: CN (occurrence: CN)
  Receive Date: 20200831
  Receipt Date: 20200831
  Transmission Date: 20201103
  Serious: Yes (Life-Threatening, Other)
  Sender: FDA-Public Use
  Company Number: CN-ASTRAZENECA-2020SF10173

PATIENT
  Sex: Male
  Weight: 68 kg

DRUGS (4)
  1. PLATINUM BASED CHEMOTHERAPY [Concomitant]
     Active Substance: UNSPECIFIED INGREDIENT
  2. IMFINZI [Suspect]
     Active Substance: DURVALUMAB
     Dosage: LAST DOSE OF IMFINZI WAS 620 MG/CYCLE (ONE VIAL IMFINZI 500MG/10ML+ONE VIAL IMFINZI 120MG/2.4ML, ...
     Route: 042
  3. RADIOTHERAPY [Concomitant]
     Active Substance: RADIATION THERAPY
  4. IMFINZI [Suspect]
     Active Substance: DURVALUMAB
     Route: 042
     Dates: start: 20200414, end: 20200428

REACTIONS (3)
  - Dyspnoea [Unknown]
  - Condition aggravated [Unknown]
  - Malignant neoplasm progression [Unknown]
